FAERS Safety Report 17289813 (Version 1)
Quarter: 2020Q1

REPORT INFORMATION
  Report Type: Spontaneous
  Country: US (occurrence: US)
  Receive Date: 20200120
  Receipt Date: 20200120
  Transmission Date: 20200409
  Serious: No
  Sender: FDA-Public Use
  Company Number: US-BAYER-2020-009764

PATIENT
  Age: 54 Year
  Sex: Female

DRUGS (1)
  1. CLIMARA [Suspect]
     Active Substance: ESTRADIOL
     Indication: MENOPAUSE
     Route: 062
     Dates: start: 20200101

REACTIONS (2)
  - Product adhesion issue [None]
  - Incorrect dose administered by product [None]

NARRATIVE: CASE EVENT DATE: 20200116
